FAERS Safety Report 13291288 (Version 1)
Quarter: 2017Q1

REPORT INFORMATION
  Report Type: Report from Study
  Country: None (occurrence: BR)
  Receive Date: 20170303
  Receipt Date: 20170303
  Transmission Date: 20170428
  Serious: Yes (Hospitalization, Other)
  Sender: FDA-Public Use
  Company Number: BR-ABBVIE-17K-020-1893285-00

PATIENT
  Age: 59 Year
  Sex: Male
  Weight: 73 kg

DRUGS (7)
  1. CHLOROQUINE DIPHOSPHATE [Concomitant]
     Active Substance: CHLOROQUINE PHOSPHATE
     Indication: ARTHRALGIA
     Route: 048
  2. CODEINE [Concomitant]
     Active Substance: CODEINE
     Indication: ARTHRALGIA
     Route: 048
  3. HUMIRA [Suspect]
     Active Substance: ADALIMUMAB
     Indication: RHEUMATOID ARTHRITIS
     Route: 058
     Dates: start: 20141203, end: 20170205
  4. FOLIC ACID. [Concomitant]
     Active Substance: FOLIC ACID
     Indication: PRODUCT USED FOR UNKNOWN INDICATION
     Route: 048
  5. PREDNISONE. [Concomitant]
     Active Substance: PREDNISONE
     Indication: ARTHRALGIA
     Route: 048
  6. FAMOTIDINE. [Concomitant]
     Active Substance: FAMOTIDINE
     Indication: ARTHRALGIA
     Route: 048
  7. METHOTREXATE. [Concomitant]
     Active Substance: METHOTREXATE
     Indication: RHEUMATOID ARTHRITIS
     Route: 048

REACTIONS (6)
  - Myocardial infarction [Recovering/Resolving]
  - Fatigue [Recovering/Resolving]
  - Respiratory disorder [Recovering/Resolving]
  - Coronary vein stenosis [Recovering/Resolving]
  - Chest pain [Recovering/Resolving]
  - Weight increased [Recovering/Resolving]

NARRATIVE: CASE EVENT DATE: 20170127
